FAERS Safety Report 21474677 (Version 1)
Quarter: 2022Q4

REPORT INFORMATION
  Report Type: Spontaneous
  Country: US (occurrence: US)
  Receive Date: 20221018
  Receipt Date: 20221018
  Transmission Date: 20230113
  Serious: Yes (Hospitalization, Other)
  Sender: FDA-Public Use
  Company Number: US-COLLEGIUM PHARMACEUTICAL, INC.-20221000334

PATIENT

DRUGS (1)
  1. BUNAVAIL [Suspect]
     Active Substance: BUPRENORPHINE HYDROCHLORIDE\NALOXONE HYDROCHLORIDE
     Indication: Product used for unknown indication
     Dosage: UNKNOWN, UNKNOWN
     Route: 042

REACTIONS (3)
  - Costochondritis [Recovered/Resolved]
  - Pseudomonas infection [Recovered/Resolved]
  - Drug abuse [Unknown]
